FAERS Safety Report 21437128 (Version 2)
Quarter: 2022Q4

REPORT INFORMATION
  Report Type: Spontaneous
  Country: CN (occurrence: CN)
  Receive Date: 20221010
  Receipt Date: 20221014
  Transmission Date: 20230112
  Serious: No
  Sender: FDA-Public Use
  Company Number: CN-009507513-2209CHN009871

PATIENT
  Age: 64 Year
  Sex: Male

DRUGS (2)
  1. CILASTATIN SODIUM\IMIPENEM [Suspect]
     Active Substance: CILASTATIN SODIUM\IMIPENEM
     Indication: Sepsis
     Dosage: 1 GRAM, 4 TIMES A DAY
     Route: 041
     Dates: start: 20220825, end: 20220901
  2. TIGECYCLINE [Suspect]
     Active Substance: TIGECYCLINE
     Indication: Sepsis
     Dosage: 50 MG, 2 TIMES A DAY, IVGTT
     Route: 041
     Dates: start: 20220826, end: 20220901

REACTIONS (1)
  - Klebsiella infection [Recovering/Resolving]

NARRATIVE: CASE EVENT DATE: 20220801
